FAERS Safety Report 26042387 (Version 1)
Quarter: 2025Q4

REPORT INFORMATION
  Report Type: Report from Study
  Country: EU (occurrence: EU)
  Receive Date: 20251113
  Receipt Date: 20251113
  Transmission Date: 20260117
  Serious: Yes (Other)
  Sender: ABBVIE
  Company Number: EU-JNJFOC-20250929822

PATIENT
  Age: 65 Year
  Sex: Female

DRUGS (2)
  1. IBRUTINIB [Suspect]
     Active Substance: IBRUTINIB
     Indication: Chronic lymphocytic leukaemia
     Dosage: LAST ADMIN DATE; 2025
     Route: 048
     Dates: start: 20250515
  2. IBRUTINIB [Suspect]
     Active Substance: IBRUTINIB
     Indication: Chronic lymphocytic leukaemia
     Dosage: FIRST ADMIN DATE: 2025
     Route: 048

REACTIONS (6)
  - Leukopenia [Unknown]
  - Nausea [Recovered/Resolved]
  - Rash [Recovered/Resolved]
  - Hypertension [Recovering/Resolving]
  - Fatigue [Unknown]
  - Trigeminal neuralgia [Unknown]

NARRATIVE: CASE EVENT DATE: 20250903
